FAERS Safety Report 21437283 (Version 2)
Quarter: 2022Q4

REPORT INFORMATION
  Report Type: Spontaneous
  Country: US (occurrence: US)
  Receive Date: 20221010
  Receipt Date: 20221012
  Transmission Date: 20230113
  Serious: Yes (Other)
  Sender: FDA-Public Use
  Company Number: US-ORGANON-O2210USA000303

PATIENT
  Age: 21 Year
  Sex: Female

DRUGS (2)
  1. NUVARING [Suspect]
     Active Substance: ETHINYL ESTRADIOL\ETONOGESTREL
     Indication: Contraception
     Dosage: UNK
     Route: 067
  2. ELURYNG [Suspect]
     Active Substance: ETHINYL ESTRADIOL\ETONOGESTREL
     Indication: Contraception
     Dosage: UNK
     Route: 067

REACTIONS (10)
  - Panic attack [Unknown]
  - Hormone level abnormal [Unknown]
  - Libido decreased [Unknown]
  - Dysmenorrhoea [Unknown]
  - Mood swings [Unknown]
  - Insomnia [Unknown]
  - Nausea [Unknown]
  - Anxiety [Unknown]
  - Vaginal haemorrhage [Unknown]
  - Dehydration [Unknown]
